FAERS Safety Report 6588024-X (Version None)
Quarter: 2010Q1

REPORT INFORMATION
  Report Type: 
  Country: None (occurrence: None)
  Receive Date: 20100218
  Receipt Date: 20100212
  Transmission Date: 20100710
  Serious: Yes (Hospitalization)
  Sender: FDA-Public Use
  Company Number: US-GILEAD-2010-0027041

PATIENT
  Sex: Male
  Weight: 55.9 kg

DRUGS (14)
  1. LETAIRIS [Suspect]
     Indication: PULMONARY ARTERIAL HYPERTENSION
     Route: 048
     Dates: start: 20091209
  2. AMLODIPINE [Concomitant]
  3. CELLCEPT [Concomitant]
  4. ZINC [Concomitant]
  5. EFFEXOR [Concomitant]
  6. NIASPAN [Concomitant]
  7. OMEPRAZOLE [Concomitant]
  8. FLOMAX [Concomitant]
  9. FERROUS GLUCONATE [Concomitant]
  10. VITAMIN D [Concomitant]
  11. ASPIRIN [Concomitant]
  12. MAGNESIUM OXIDE [Concomitant]
  13. VITAMIN E [Concomitant]
  14. CALCIUM [Concomitant]

REACTIONS (4)
  - CARDIAC FAILURE CONGESTIVE [None]
  - OEDEMA PERIPHERAL [None]
  - PNEUMONIA [None]
  - PRODUCTIVE COUGH [None]
